FAERS Safety Report 25124374 (Version 2)
Quarter: 2025Q1

REPORT INFORMATION
  Report Type: Spontaneous
  Country: ES (occurrence: ES)
  Receive Date: 20250326
  Receipt Date: 20250328
  Transmission Date: 20250408
  Serious: Yes (Other)
  Sender: SANOFI AVENTIS
  Company Number: ES-SA-2025SA084151

PATIENT
  Sex: Female

DRUGS (1)
  1. INSULIN GLARGINE [Suspect]
     Active Substance: INSULIN GLARGINE
     Indication: Diabetes mellitus
     Dosage: 42 IU, QD
     Route: 058

REACTIONS (20)
  - Hepatitis [Unknown]
  - Cerebrovascular accident [Unknown]
  - Circulatory collapse [Unknown]
  - Speech disorder [Unknown]
  - Fall [Unknown]
  - Headache [Unknown]
  - Urinary tract infection [Unknown]
  - Hiatus hernia [Unknown]
  - Abdominal pain upper [Unknown]
  - Nausea [Unknown]
  - Acarodermatitis [Unknown]
  - Cystitis [Unknown]
  - Osteoarthritis [Unknown]
  - Tooth infection [Unknown]
  - Blood pressure increased [Unknown]
  - Pain in extremity [Unknown]
  - Breast discharge [Unknown]
  - Pruritus [Unknown]
  - Hyperglycaemia [Recovered/Resolved]
  - Product administered at inappropriate site [Unknown]

NARRATIVE: CASE EVENT DATE: 20220101
